FAERS Safety Report 16801912 (Version 5)
Quarter: 2020Q4

REPORT INFORMATION
  Report Type: Spontaneous
  Country: JP (occurrence: JP)
  Receive Date: 20190912
  Receipt Date: 20201216
  Transmission Date: 20210113
  Serious: Yes (Hospitalization)
  Sender: FDA-Public Use
  Company Number: JP-ROCHE-2400290

PATIENT
  Age: 18 Year
  Sex: Female
  Weight: 57 kg

DRUGS (17)
  1. ALFACALCIDOL [Concomitant]
     Active Substance: ALFACALCIDOL
     Route: 048
  2. DEXART [Concomitant]
     Active Substance: DEXAMETHASONE SODIUM PHOSPHATE
     Dosage: 10:00,18:00
     Route: 065
     Dates: start: 20190712, end: 20190715
  3. REBAMIPIDE [Concomitant]
     Active Substance: REBAMIPIDE
     Route: 048
  4. HEPARIN SODIUM. [Concomitant]
     Active Substance: HEPARIN SODIUM
     Route: 065
  5. PREDNISOLONE. [Concomitant]
     Active Substance: PREDNISOLONE
     Dates: start: 20190611, end: 20190613
  6. ACTEMRA [Suspect]
     Active Substance: TOCILIZUMAB
     Indication: STILL^S DISEASE
     Dosage: DATE OF THE MOST RECENT DOSE OF TOCILIZUMAB SHE RECEIVED PRIOR TO EVENTS ONSET: 25/JUN/2019
     Route: 041
     Dates: start: 20190625
  7. DAIPHEN [Concomitant]
     Active Substance: SULFAMETHOXAZOLE\TRIMETHOPRIM
     Dosage: DOSAGE IS UNCERTAIN.
     Route: 048
  8. NEORAL [Concomitant]
     Active Substance: CYCLOSPORINE
     Route: 048
  9. DENOSINE (JAPAN) [Concomitant]
     Active Substance: GANCICLOVIR
     Dosage: 10:00,18:00
     Route: 041
  10. BIO-THREE [Concomitant]
     Active Substance: HERBALS
     Route: 048
  11. DEXART [Concomitant]
     Active Substance: DEXAMETHASONE SODIUM PHOSPHATE
     Dosage: 10:00,18:00
     Route: 065
     Dates: start: 20190620, end: 20190623
  12. DEXART [Concomitant]
     Active Substance: DEXAMETHASONE SODIUM PHOSPHATE
     Dosage: 10:00,18:00
     Route: 065
     Dates: start: 20190624, end: 20190630
  13. DEXART [Concomitant]
     Active Substance: DEXAMETHASONE SODIUM PHOSPHATE
     Dosage: 10:00,18:00
     Route: 065
     Dates: start: 20190704, end: 20190708
  14. LANSOPRAZOLE OD [Concomitant]
     Active Substance: LANSOPRAZOLE
     Route: 048
  15. DEXART [Concomitant]
     Active Substance: DEXAMETHASONE SODIUM PHOSPHATE
     Dosage: 10:00,18:00
     Route: 065
     Dates: start: 20190617, end: 20190619
  16. DEXART [Concomitant]
     Active Substance: DEXAMETHASONE SODIUM PHOSPHATE
     Dosage: 10:00,18:00
     Route: 065
     Dates: start: 20190709, end: 20190711
  17. SENNOSIDE [Concomitant]
     Active Substance: SENNOSIDES
     Dosage: 14:00,11:00
     Route: 048

REACTIONS (2)
  - Haemophagocytic lymphohistiocytosis [Recovering/Resolving]
  - Platelet count decreased [Recovering/Resolving]

NARRATIVE: CASE EVENT DATE: 20190627
